FAERS Safety Report 8495314-2 (Version None)
Quarter: 2012Q3

REPORT INFORMATION
  Report Type: 
  Country: None (occurrence: None)
  Receive Date: 20120709
  Receipt Date: 20120702
  Transmission Date: 20120928
  Serious: Yes (Other)
  Sender: FDA-Public Use
  Company Number: FR-PFIZER INC-2012157534

PATIENT
  Age: 52 Year
  Sex: Female

DRUGS (6)
  1. FOLINIC ACID [Concomitant]
     Dosage: UNK
     Dates: start: 20120101
  2. OXALIPLATIN [Suspect]
     Dosage: UNK
     Route: 042
     Dates: start: 20120101
  3. KYTRIL [Suspect]
     Dosage: UNK
     Dates: start: 20120101
  4. FLUOROURACIL [Suspect]
     Dosage: UNK
     Route: 042
     Dates: start: 20120101
  5. IRINOTECAN HYDROCHLORIDE [Suspect]
     Dosage: UNK
     Dates: start: 20120101
  6. SOLU-MEDROL [Suspect]
     Dosage: UNK
     Dates: start: 20120101

REACTIONS (3)
  - DYSARTHRIA [None]
  - PARAESTHESIA [None]
  - MYOCLONUS [None]
